FAERS Safety Report 7118238-1 (Version None)
Quarter: 2010Q4

REPORT INFORMATION
  Report Type: 
  Country: None (occurrence: None)
  Receive Date: 20101123
  Receipt Date: 20101117
  Transmission Date: 20110411
  Serious: Yes (Hospitalization)
  Sender: FDA-Public Use
  Company Number: JP-SANOFI-AVENTIS-2010SA024107

PATIENT
  Age: 81 Year
  Sex: Male

DRUGS (6)
  1. TAXOTERE [Suspect]
     Route: 041
  2. TAXOTERE [Suspect]
     Route: 041
  3. TAXOTERE [Suspect]
     Route: 041
  4. TAXOTERE [Suspect]
     Route: 041
     Dates: start: 20071116
  5. ESTRAMUSTINE PHOSPHATE SODIUM [Concomitant]
     Dosage: DAY 1-3DAY 8-10
     Route: 048
  6. DEXAMETHASONE [Concomitant]
     Route: 048

REACTIONS (5)
  - DECREASED APPETITE [None]
  - EYE DISCHARGE [None]
  - MALAISE [None]
  - NICOTINIC ACID DEFICIENCY [None]
  - RASH [None]
